FAERS Safety Report 20537027 (Version 2)
Quarter: 2022Q2

REPORT INFORMATION
  Report Type: Report from Study
  Country: US (occurrence: US)
  Receive Date: 20220302
  Receipt Date: 20220524
  Transmission Date: 20220721
  Serious: No
  Sender: FDA-Public Use
  Company Number: US-NOVARTISTESTPH-NVSC2022US048947

PATIENT
  Sex: Female

DRUGS (1)
  1. COSENTYX [Suspect]
     Active Substance: SECUKINUMAB
     Indication: Product used for unknown indication
     Dosage: 300 MG
     Route: 065

REACTIONS (8)
  - Eczema [Unknown]
  - Dysphagia [Unknown]
  - Milk allergy [Unknown]
  - Pruritus [Unknown]
  - Skin exfoliation [Unknown]
  - Eye swelling [Unknown]
  - Tonsillar hypertrophy [Unknown]
  - Gluten sensitivity [Unknown]
